FAERS Safety Report 20298583 (Version 1)
Quarter: 2022Q1

REPORT INFORMATION
  Report Type: Spontaneous
  Country: US (occurrence: None)
  Receive Date: 20220105
  Receipt Date: 20220105
  Transmission Date: 20220423
  Serious: No
  Sender: FDA-Public Use
  Company Number: 2021A329954

PATIENT

DRUGS (1)
  1. CALQUENCE [Suspect]
     Active Substance: ACALABRUTINIB
     Route: 048

REACTIONS (7)
  - Headache [Recovering/Resolving]
  - Muscular weakness [Recovering/Resolving]
  - Blood test abnormal [Not Recovered/Not Resolved]
  - Lymphadenopathy [Unknown]
  - Dyspnoea [Unknown]
  - White blood cell count increased [Unknown]
  - Haemoglobin decreased [Unknown]
